FAERS Safety Report 18600857 (Version 1)
Quarter: 2020Q4

REPORT INFORMATION
  Report Type: Spontaneous
  Country: AU (occurrence: AU)
  Receive Date: 20201210
  Receipt Date: 20201210
  Transmission Date: 20210114
  Serious: Yes (Hospitalization, Other)
  Sender: FDA-Public Use
  Company Number: AU-009507513-2012AUS001892

PATIENT
  Age: 54 Year
  Sex: Male

DRUGS (5)
  1. PREDNISOLONE. [Suspect]
     Active Substance: PREDNISOLONE
     Indication: CHRONIC GRAFT VERSUS HOST DISEASE IN SKIN
     Dosage: 25 MILLIGRAM, QD
     Route: 065
  2. MYCOPHENOLATE MOFETIL. [Suspect]
     Active Substance: MYCOPHENOLATE MOFETIL
     Indication: CHRONIC GRAFT VERSUS HOST DISEASE IN SKIN
     Dosage: 1 GRAM, TID
     Route: 065
     Dates: start: 201908
  3. VORICONAZOLE. [Suspect]
     Active Substance: VORICONAZOLE
     Indication: PRODUCT USED FOR UNKNOWN INDICATION
     Dosage: 200 MILLIGRAM, BID
     Route: 065
     Dates: start: 201701
  4. RUXOLITINIB [Suspect]
     Active Substance: RUXOLITINIB
     Indication: CHRONIC GRAFT VERSUS HOST DISEASE IN SKIN
     Dosage: 5 MILLIGRAM, BID
  5. DIPROSONE O.V. [Suspect]
     Active Substance: BETAMETHASONE DIPROPIONATE
     Indication: CHRONIC GRAFT VERSUS HOST DISEASE IN SKIN
     Dosage: 1 ^OT^ (1 DOSAGE FORM), BID
     Route: 061
     Dates: start: 201801

REACTIONS (12)
  - Graft versus host disease in skin [Not Recovered/Not Resolved]
  - Myopathy [Unknown]
  - Product use in unapproved indication [Unknown]
  - Sepsis [Unknown]
  - Nephrotic syndrome [Unknown]
  - Skin infection [Unknown]
  - Renal disorder [Unknown]
  - Respiratory tract infection viral [Unknown]
  - Staphylococcal bacteraemia [Unknown]
  - Drug intolerance [Unknown]
  - Hyperglycaemia [Unknown]
  - Condition aggravated [Not Recovered/Not Resolved]
